FAERS Safety Report 15433754 (Version 1)
Quarter: 2018Q3

REPORT INFORMATION
  Report Type: Spontaneous
  Country: ES (occurrence: ES)
  Receive Date: 20180927
  Receipt Date: 20180927
  Transmission Date: 20181010
  Serious: Yes (Other)
  Sender: FDA-Public Use
  Company Number: ES-AUROBINDO-AUR-APL-2018-047335

PATIENT
  Age: 62 Year
  Sex: Female

DRUGS (9)
  1. DACORTIN [Interacting]
     Active Substance: PREDNISONE
     Indication: AUTOIMMUNE HEPATITIS
     Dosage: 25 MILLIGRAM, EVERY WEEK,UNK, 5/WMG
     Route: 065
  2. TRYPTIZOL [Interacting]
     Active Substance: AMITRIPTYLINE HYDROCHLORIDE
     Dosage: UNK
     Route: 065
  3. GABAPENTIN FILM?COATED TABLET [Interacting]
     Active Substance: GABAPENTIN
     Dosage: UNK
     Route: 065
  4. GABAPENTIN FILM?COATED TABLET [Suspect]
     Active Substance: GABAPENTIN
     Indication: PAIN
     Dosage: 2 DOSAGE FORM, DAILY,1 DF, BID
     Route: 065
  5. GABAPENTIN FILM?COATED TABLET [Interacting]
     Active Substance: GABAPENTIN
     Dosage: 2 DOSAGE FORM, DAILY,1 DF, BID
     Route: 065
  6. TRYPTIZOL [Interacting]
     Active Substance: AMITRIPTYLINE HYDROCHLORIDE
     Indication: PAIN
     Dosage: 0.5 DF, DAILY
     Route: 065
  7. TRYPTIZOL [Interacting]
     Active Substance: AMITRIPTYLINE HYDROCHLORIDE
     Dosage: 0.5 DF, DAILY
     Route: 065
  8. DACORTIN [Interacting]
     Active Substance: PREDNISONE
     Dosage: 10 MILLIGRAM, UNKNOWN
     Route: 065
  9. TERIPARATIDE [Interacting]
     Active Substance: TERIPARATIDE
     Indication: OSTEOPOROSIS
     Dosage: 20 MICROGRAM, DAILY
     Route: 058
     Dates: start: 20180614, end: 201808

REACTIONS (7)
  - Hypothermia [Recovered/Resolved]
  - Chills [Recovered/Resolved]
  - Drug interaction [Unknown]
  - Headache [Recovered/Resolved]
  - Feeling abnormal [Recovered/Resolved]
  - Sleep disorder [Recovered/Resolved]
  - Vomiting [Recovered/Resolved]

NARRATIVE: CASE EVENT DATE: 201807
